APPROVED DRUG PRODUCT: DESONIDE
Active Ingredient: DESONIDE
Strength: 0.05%
Dosage Form/Route: CREAM;TOPICAL
Application: A073548 | Product #001 | TE Code: AB
Applicant: SUN PHARMA CANADA INC
Approved: Jun 30, 1992 | RLD: No | RS: No | Type: RX